FAERS Safety Report 19711004 (Version 1)
Quarter: 2021Q3

REPORT INFORMATION
  Report Type: Spontaneous
  Country: RU (occurrence: RU)
  Receive Date: 20210816
  Receipt Date: 20210816
  Transmission Date: 20211014
  Serious: Yes (Death, Other)
  Sender: FDA-Public Use
  Company Number: RU-ASTRAZENECA-2021A672746

PATIENT
  Age: 37 Year
  Sex: Female

DRUGS (21)
  1. ACYCLOVIR. [Suspect]
     Active Substance: ACYCLOVIR
     Indication: ANTIVIRAL TREATMENT
     Dosage: UNK
     Route: 065
     Dates: start: 201404, end: 201405
  2. PROPOFOL. [Suspect]
     Active Substance: PROPOFOL
     Indication: MENINGOENCEPHALITIS VIRAL
     Route: 065
     Dates: start: 201404, end: 201405
  3. OMEZ [Suspect]
     Active Substance: OMEPRAZOLE
     Indication: MENINGOENCEPHALITIS VIRAL
     Dosage: UNK
     Route: 065
     Dates: start: 201404, end: 201405
  4. DOPAMINE [Suspect]
     Active Substance: DOPAMINE HYDROCHLORIDE
     Indication: MENINGOENCEPHALITIS VIRAL
     Dosage: UNK
     Route: 065
     Dates: start: 201404, end: 201405
  5. DEPAKIN [Suspect]
     Active Substance: VALPROATE SODIUM
     Indication: MENINGOENCEPHALITIS VIRAL
     Dosage: UNK
     Route: 065
     Dates: start: 201404, end: 201405
  6. VIFERON [Suspect]
     Active Substance: INTERFERON ALFA-2B
     Indication: ANTIVIRAL TREATMENT
     Dosage: UNK
     Route: 065
     Dates: start: 201404, end: 201405
  7. CEFABOL [CEFOTAXIME SODIUM] [Suspect]
     Active Substance: CEFOTAXIME SODIUM
     Indication: ANTIBIOTIC THERAPY
     Dosage: UNK
     Route: 065
     Dates: start: 201404, end: 201405
  8. DEXON [DEXAMETHASONE] [Suspect]
     Active Substance: DEXAMETHASONE
     Indication: ADRENOCORTICAL STEROID THERAPY
     Dosage: UNK
     Route: 065
     Dates: start: 201404, end: 201405
  9. ANALGIN (METAMIZOLE SODIUM MONOHYDRATE) [Suspect]
     Active Substance: DIPYRONE
     Indication: MENINGOENCEPHALITIS VIRAL
     Dosage: UNK
     Route: 065
     Dates: start: 201404, end: 201405
  10. GLUCOSE + SODIUM CHLORIDE [Suspect]
     Active Substance: DEXTROSE\SODIUM CHLORIDE
     Indication: INFUSION
     Dosage: UNK
     Route: 065
     Dates: start: 201404, end: 201405
  11. VIKASOL [Suspect]
     Active Substance: MENADIONE
     Indication: MENINGOENCEPHALITIS VIRAL
     Dosage: UNK
     Route: 065
     Dates: start: 201404, end: 201405
  12. RELANIUM (DIAZEPAM) [Suspect]
     Active Substance: DIAZEPAM
     Indication: MENINGOENCEPHALITIS VIRAL
     Dosage: UNK
     Route: 065
     Dates: start: 201404, end: 201405
  13. VITAMIN B 1?6?12 [Suspect]
     Active Substance: CYANOCOBALAMIN\PYRIDOXINE\THIAMINE
     Indication: MENINGOENCEPHALITIS VIRAL
     Dosage: UNK
     Route: 065
     Dates: start: 201404, end: 201405
  14. ARDUAN [Suspect]
     Active Substance: PIPECURONIUM BROMIDE
     Indication: MENINGOENCEPHALITIS VIRAL
     Dosage: UNK
     Route: 065
     Dates: start: 201404, end: 201405
  15. VOLUVEN [Suspect]
     Active Substance: HYDROXYETHYL STARCH 130/0.4
     Indication: INFUSION
     Dosage: UNK
     Route: 065
     Dates: start: 201404, end: 201405
  16. HEPARIN [Suspect]
     Active Substance: HEPARIN SODIUM
     Indication: MENINGOENCEPHALITIS VIRAL
     Dosage: UNK
     Route: 065
     Dates: start: 201404, end: 201405
  17. DIPHENHYDRAMINE. [Suspect]
     Active Substance: DIPHENHYDRAMINE
     Indication: MENINGOENCEPHALITIS VIRAL
     Dosage: UNK
     Route: 065
     Dates: start: 201404, end: 201405
  18. CARBAMAZEPINE. [Suspect]
     Active Substance: CARBAMAZEPINE
     Indication: MENINGOENCEPHALITIS VIRAL
     Dosage: UNK
     Route: 065
     Dates: start: 201404, end: 201405
  19. SODIUM OXYBATE. [Suspect]
     Active Substance: SODIUM OXYBATE
     Indication: MENINGOENCEPHALITIS VIRAL
     Dosage: UNK
     Route: 065
     Dates: start: 201404, end: 201405
  20. THIOPENTAL SODIUM. [Suspect]
     Active Substance: THIOPENTAL SODIUM
     Indication: MENINGOENCEPHALITIS VIRAL
     Dosage: UNK
     Route: 065
     Dates: start: 201404, end: 201405
  21. TRENTAL [Suspect]
     Active Substance: PENTOXIFYLLINE
     Indication: MENINGOENCEPHALITIS VIRAL
     Dosage: UNK
     Route: 065
     Dates: start: 201404, end: 201405

REACTIONS (4)
  - Cardiac arrest [Fatal]
  - Off label use [Fatal]
  - Cerebrovascular insufficiency [Fatal]
  - Multiple organ dysfunction syndrome [Fatal]

NARRATIVE: CASE EVENT DATE: 201404
